FAERS Safety Report 8131879-8 (Version None)
Quarter: 2012Q1

REPORT INFORMATION
  Report Type: 
  Country: None (occurrence: None)
  Receive Date: 20120213
  Receipt Date: 20120209
  Transmission Date: 20120608
  Serious: Yes (Other)
  Sender: FDA-Public Use
  Company Number: JP-PFIZER INC-2012036121

PATIENT
  Sex: Female

DRUGS (2)
  1. ZOLOFT [Suspect]
     Dosage: UNK
     Route: 064
  2. MEILAX [Concomitant]
     Dosage: UNK

REACTIONS (2)
  - FOETAL EXPOSURE DURING PREGNANCY [None]
  - NEONATAL HYPONATRAEMIA [None]
